FAERS Safety Report 8345205-2 (Version None)
Quarter: 2012Q2

REPORT INFORMATION
  Report Type: 
  Country: None (occurrence: None)
  Receive Date: 20120508
  Receipt Date: 20120501
  Transmission Date: 20120825
  Serious: Yes (Death, Hospitalization)
  Sender: FDA-Public Use
  Company Number: US-ACTELION-A-NJ2012-63048

PATIENT

DRUGS (18)
  1. HYDROCODONE BITARTRATE AND ACETAMINOPHEN [Concomitant]
  2. RYTHMOL [Concomitant]
  3. REVATIO [Concomitant]
  4. CARDIZEM CD [Concomitant]
  5. XARELTO [Concomitant]
  6. METOPROLOL TARTRATE [Concomitant]
  7. CITALOPRAM HYDROBROMIDE [Concomitant]
  8. FLUTICASONE PROPIONATE/SALMETEROL [Concomitant]
  9. OXYGEN [Concomitant]
  10. ALBUTEROL [Concomitant]
  11. HYDROXYZINE [Concomitant]
  12. TRACLEER [Suspect]
     Indication: PULMONARY ARTERIAL HYPERTENSION
     Dosage: 125 MG, BID
     Route: 048
     Dates: start: 20110805, end: 20120417
  13. COUMADIN [Concomitant]
  14. ASPIRIN [Concomitant]
  15. LEVOTHYROXINE SODIUM [Concomitant]
  16. SPIRONOLACTONE [Concomitant]
  17. ASCORBIC ACID [Concomitant]
  18. FUROSEMIDE [Concomitant]

REACTIONS (14)
  - TRANSFUSION [None]
  - RESPIRATORY FAILURE [None]
  - ACUTE RESPIRATORY FAILURE [None]
  - ALANINE AMINOTRANSFERASE INCREASED [None]
  - HYPOTHYROIDISM [None]
  - RENAL FAILURE ACUTE [None]
  - NASOPHARYNGITIS [None]
  - BLOOD ALKALINE PHOSPHATASE INCREASED [None]
  - GASTROINTESTINAL HAEMORRHAGE [None]
  - DYSPNOEA [None]
  - ASPARTATE AMINOTRANSFERASE INCREASED [None]
  - HAEMORRHAGIC ANAEMIA [None]
  - INFECTION [None]
  - ESSENTIAL HYPERTENSION [None]
